FAERS Safety Report 12677937 (Version 1)
Quarter: 2016Q3

REPORT INFORMATION
  Report Type: Spontaneous
  Country: US (occurrence: US)
  Receive Date: 20160823
  Receipt Date: 20160823
  Transmission Date: 20161109
  Serious: No
  Sender: FDA-Public Use
  Company Number: US-APRECIA PHARMACEUTICALS-APRE20160215

PATIENT
  Age: 21 Year
  Sex: Female
  Weight: 45.45 kg

DRUGS (2)
  1. SPRITAM [Suspect]
     Active Substance: LEVETIRACETAM
     Indication: EPILEPSY
     Route: 065
     Dates: start: 201607
  2. LAMICTAL [Concomitant]
     Active Substance: LAMOTRIGINE
     Indication: SEIZURE
     Route: 065
     Dates: start: 201311

REACTIONS (2)
  - Adverse event [Recovered/Resolved]
  - Nightmare [Recovered/Resolved]

NARRATIVE: CASE EVENT DATE: 201607
